FAERS Safety Report 10706986 (Version 1)
Quarter: 2015Q1

REPORT INFORMATION
  Report Type: Spontaneous
  Country: US (occurrence: None)
  Receive Date: 20150112
  Receipt Date: 20150112
  Transmission Date: 20150721
  Serious: Yes (Hospitalization, Other)
  Sender: FDA-Public Use
  Company Number: None

PATIENT
  Age: 17 Year
  Sex: Male
  Weight: 40.7 kg

DRUGS (13)
  1. AMIKACIN [Concomitant]
     Active Substance: AMIKACIN
  2. MULTIVITAMIN (AQUADEK) [Concomitant]
  3. CAYSTON [Concomitant]
     Active Substance: AZTREONAM
  4. OMEPRAZOLE. [Concomitant]
     Active Substance: OMEPRAZOLE
  5. PREDNISONE. [Concomitant]
     Active Substance: PREDNISONE
  6. CEFOXITIN [Concomitant]
     Active Substance: CEFOXITIN\CEFOXITIN SODIUM
  7. AZITHROMYCIN [Concomitant]
     Active Substance: AZITHROMYCIN ANHYDROUS
  8. FLUTICASONE NASAL [Concomitant]
     Active Substance: FLUTICASONE\FLUTICASONE PROPIONATE
  9. ZENPEP [Concomitant]
     Active Substance: PANCRELIPASE\PANCRELIPASE AMYLASE\PANCRELIPASE LIPASE\PANCRELIPASE PROTEASE
  10. CLOFAZIMINE 50 MG [Suspect]
     Active Substance: CLOFAZIMINE
     Indication: MYCOBACTERIUM ABSCESSUS INFECTION
     Dosage: 2 PILLS
     Route: 048
     Dates: start: 20130321
  11. PULMOZYME [Concomitant]
     Active Substance: DORNASE ALFA
  12. ALBUTEROL. [Concomitant]
     Active Substance: ALBUTEROL
  13. HYPERTONIC SALINE [Concomitant]

REACTIONS (2)
  - Diabetes mellitus [None]
  - Hyperglycaemia [None]

NARRATIVE: CASE EVENT DATE: 20150106
